FAERS Safety Report 12998573 (Version 1)
Quarter: 2016Q4

REPORT INFORMATION
  Report Type: Spontaneous
  Country: JP (occurrence: JP)
  Receive Date: 20161205
  Receipt Date: 20161205
  Transmission Date: 20170207
  Serious: Yes (Other)
  Sender: FDA-Public Use
  Company Number: JP-VIIV HEALTHCARE LIMITED-JP2016JPN174809

PATIENT
  Age: 42 Year
  Sex: Male

DRUGS (7)
  1. VORICONAZOLE. [Concomitant]
     Active Substance: VORICONAZOLE
     Dosage: UNK
  2. CELSENTRI [Suspect]
     Active Substance: MARAVIROC
     Indication: HIV INFECTION
     Dosage: 150 MG, UNK
     Route: 048
  3. CELSENTRI [Suspect]
     Active Substance: MARAVIROC
     Dosage: UNK MG, UNK
     Route: 048
  4. TRUVADA [Concomitant]
     Active Substance: EMTRICITABINE\TENOFOVIR DISOPROXIL FUMARATE
     Indication: HIV INFECTION
     Dosage: 1 DF, QD
     Route: 048
  5. ISENTRESS [Concomitant]
     Active Substance: RALTEGRAVIR POTASSIUM
     Indication: HIV INFECTION
     Dosage: 400 MG, BID
     Route: 048
  6. CELSENTRI [Suspect]
     Active Substance: MARAVIROC
     Dosage: 150 MG, UNK
     Route: 048
  7. CELSENTRI [Suspect]
     Active Substance: MARAVIROC
     Indication: PROGRESSIVE MULTIFOCAL LEUKOENCEPHALOPATHY
     Dosage: 300 MG, UNK
     Route: 048

REACTIONS (5)
  - Vomiting [Recovering/Resolving]
  - Pyrexia [Recovering/Resolving]
  - Immune reconstitution inflammatory syndrome [Recovered/Resolved]
  - Dizziness [Recovering/Resolving]
  - Progressive multifocal leukoencephalopathy [Recovered/Resolved]
